FAERS Safety Report 9748544 (Version 3)
Quarter: 2014Q1

REPORT INFORMATION
  Report Type: Spontaneous
  Country: CH (occurrence: None)
  Receive Date: 20131209
  Receipt Date: 20140210
  Transmission Date: 20141002
  Serious: Yes (Hospitalization, Other)
  Sender: FDA-Public Use
  Company Number: 2013347586

PATIENT
  Age: 29 Year
  Sex: Female

DRUGS (7)
  1. FRAGMIN [Suspect]
     Dosage: 5000 IU, 1X/DAY
     Dates: start: 20130607, end: 20130609
  2. ELTROXIN [Suspect]
     Indication: HYPOTHYROIDISM
     Dosage: 50 UG OR 75 UG, 1X/DAY
     Route: 048
     Dates: start: 2012
  3. BUSCOPAN [Suspect]
     Dosage: MAXIUMU 2X10 MG AS NEEDED
     Dates: start: 20130510
  4. ADALAT CR [Suspect]
     Dosage: 20 MG, 1X/DAY
     Dates: start: 20130607, end: 20130610
  5. MAGNESIOCARD [Suspect]
     Dosage: UNKNOWN DOSE 2XDAY
     Dates: start: 20130610
  6. DEURSIL [Suspect]
     Dosage: 900 MG, 1X/DAY
     Dates: start: 20130703
  7. GYNO-TARDYFERON (ASCORBIC ACID, FERROUS SULFATE, FOLIC ACID, PROTEASE) [Concomitant]

REACTIONS (3)
  - Vaginal haemorrhage [None]
  - Gestational hypertension [None]
  - Caesarean section [None]
